FAERS Safety Report 22295837 (Version 1)
Quarter: 2023Q2

REPORT INFORMATION
  Report Type: Spontaneous
  Country: US (occurrence: None)
  Receive Date: 20230507
  Receipt Date: 20230507
  Transmission Date: 20230721
  Serious: Yes (Other)
  Sender: FDA-Public Use
  Company Number: None

PATIENT
  Age: 63 Year
  Sex: Male
  Weight: 105.75 kg

DRUGS (4)
  1. TINACTIN ANTIFUNGAL [Suspect]
     Active Substance: TOLNAFTATE
     Indication: Tinea cruris
     Dosage: FREQUENCY : AS NEEDED;?
     Route: 061
     Dates: start: 20230423, end: 20230507
  2. TINACTIN ANTIFUNGAL [Suspect]
     Active Substance: TOLNAFTATE
     Indication: Tinea pedis
  3. TINACTIN [Suspect]
     Active Substance: TOLNAFTATE
     Indication: Tinea pedis
     Dosage: FREQUENCY : AS NEEDED;?
     Route: 061
     Dates: start: 20230423, end: 20230507
  4. INDOMETHACIN [Concomitant]
     Active Substance: INDOMETHACIN

REACTIONS (1)
  - Dizziness [None]

NARRATIVE: CASE EVENT DATE: 20230501
